FAERS Safety Report 6038924-4 (Version None)
Quarter: 2009Q1

REPORT INFORMATION
  Report Type: 
  Country: None (occurrence: None)
  Receive Date: 20090115
  Receipt Date: 20090107
  Transmission Date: 20090719
  Serious: Yes (Hospitalization, Other)
  Sender: FDA-Public Use
  Company Number: FR-ABBOTT-08P-056-0490919-00

PATIENT
  Sex: Male

DRUGS (5)
  1. ODRIK [Suspect]
     Indication: HYPERTENSION
     Route: 048
     Dates: start: 20080827, end: 20080918
  2. ODRIK [Suspect]
  3. SULFAMETHOXAZOLE AND TRIMETHOPRIM [Suspect]
     Indication: LOCALISED INFECTION
     Route: 048
     Dates: start: 20080913, end: 20080916
  4. SULFAMETHOXAZOLE AND TRIMETHOPRIM [Suspect]
     Dates: start: 20080918
  5. CLINDAMYCIN HCL [Concomitant]
     Indication: LOCALISED INFECTION
     Dosage: 1800MG DAILY
     Route: 048
     Dates: start: 20080913

REACTIONS (2)
  - ANGIOEDEMA [None]
  - LOCALISED INFECTION [None]
